FAERS Safety Report 19726280 (Version 2)
Quarter: 2021Q3

REPORT INFORMATION
  Report Type: Report from Study
  Country: US (occurrence: US)
  Receive Date: 20210819
  Receipt Date: 20210913
  Transmission Date: 20211014
  Serious: Yes (Death)
  Sender: FDA-Public Use
  Company Number: US-OTSUKA-2021_028845

PATIENT
  Age: 93 Year
  Sex: Female
  Weight: 49.8 kg

DRUGS (45)
  1. DOCUSATE SODIUM. [Concomitant]
     Active Substance: DOCUSATE SODIUM
     Dosage: 100 MG, BID
     Route: 048
     Dates: start: 20200820
  2. ONDANSETRON HCL [Concomitant]
     Active Substance: ONDANSETRON HYDROCHLORIDE
     Indication: NAUSEA
     Dosage: 4 MG (EVERY 6 HOURS AS NEEDED)
     Route: 048
     Dates: start: 20200929
  3. FENTANYL TRANSDERMAL SYSTEM [Concomitant]
     Active Substance: FENTANYL
     Indication: PAIN
     Dosage: UNK (12 MCG/HR APPLY 1 PATCH TRANSDERMALLY EVERY 12 HOURS)
     Route: 062
     Dates: start: 20200910
  4. DEXTROMETHORPHAN/QUINIDINE [Suspect]
     Active Substance: DEXTROMETHORPHAN HYDROBROMIDE\QUINIDINE SULFATE
     Indication: PSYCHOTIC DISORDER
     Dosage: 1 DF (20?10 MG), BID
     Route: 048
     Dates: start: 20200718, end: 20200918
  5. METOPROLOL TARTRATE. [Concomitant]
     Active Substance: METOPROLOL TARTRATE
     Indication: ESSENTIAL HYPERTENSION
     Dosage: 25 MG, BID
     Route: 048
     Dates: start: 20171014
  6. WELCHOL [Concomitant]
     Active Substance: COLESEVELAM HYDROCHLORIDE
     Indication: LIPID METABOLISM DISORDER
     Dosage: 1 DF, QD
     Route: 048
     Dates: start: 20200627
  7. WELCHOL [Concomitant]
     Active Substance: COLESEVELAM HYDROCHLORIDE
     Dosage: 1 DF, QD
     Route: 048
     Dates: start: 20200711
  8. FENTANYL TRANSDERMAL SYSTEM [Concomitant]
     Active Substance: FENTANYL
     Dosage: UNK (12 MCG/HR APPLY 1 PATCH TRANSDERMALLY EVERY 12 HOURS)
     Route: 062
     Dates: start: 20200913
  9. FERROUS SULFATE. [Concomitant]
     Active Substance: FERROUS SULFATE
     Indication: SUPPLEMENTATION THERAPY
     Dosage: 325 MG (65 FE), QD
     Route: 048
     Dates: start: 20200815
  10. ACETAMINOPHEN. [Concomitant]
     Active Substance: ACETAMINOPHEN
     Dosage: 2 DF, QID
     Route: 048
     Dates: start: 20200709
  11. CAPSICUM SPP. OLEORESIN [Concomitant]
     Active Substance: CAPSICUM OLEORESIN
     Dosage: UNK (APPLY AFFECTED AREA TOPICALLY EVERY DAY AND EVENING SHIFT AS NEEDED)
     Route: 061
     Dates: start: 20200626
  12. FISH OIL [Concomitant]
     Active Substance: FISH OIL
     Indication: SUPPLEMENTATION THERAPY
     Dosage: 100 MG, QD
     Route: 048
     Dates: start: 20200606
  13. FISH OIL [Concomitant]
     Active Substance: FISH OIL
     Dosage: 100 MG, QD
     Route: 048
     Dates: start: 20200709
  14. ONDANSETRON HCL [Concomitant]
     Active Substance: ONDANSETRON HYDROCHLORIDE
     Indication: VOMITING
  15. FUROSEMIDE. [Concomitant]
     Active Substance: FUROSEMIDE
     Indication: OEDEMA
     Dosage: 20 MG, QD
     Route: 048
     Dates: start: 20171014
  16. PRAVASTATIN SODIUM. [Concomitant]
     Active Substance: PRAVASTATIN SODIUM
     Indication: LIPID METABOLISM DISORDER
     Dosage: 20 MG, QD (EVERY EVENING)
     Route: 048
     Dates: start: 20200625
  17. CAPSICUM SPP. OLEORESIN [Concomitant]
     Active Substance: CAPSICUM OLEORESIN
     Dosage: UNK (APPLY AFFECTED AREA TOPICALLY EVERY DAY AND EVENING SHIFT AS NEEDED)
     Route: 061
     Dates: start: 20200709
  18. DOCUSATE SODIUM. [Concomitant]
     Active Substance: DOCUSATE SODIUM
     Indication: CONSTIPATION
     Dosage: 100 MG, QD (IN THE EVENING TIME)
     Route: 048
     Dates: start: 20171021
  19. LEVETIRACETAM. [Concomitant]
     Active Substance: LEVETIRACETAM
     Indication: SEIZURE
     Dosage: 250 MG, BID
     Route: 048
     Dates: start: 20200708
  20. LISINOPRIL. [Concomitant]
     Active Substance: LISINOPRIL
     Indication: HYPERTENSION
     Dosage: 20 MG, BID
     Route: 048
     Dates: start: 20171014
  21. LORAZEPAM. [Concomitant]
     Active Substance: LORAZEPAM
     Indication: ESSENTIAL HYPERTENSION
     Dosage: 0.25 ML (EVERY 2 HOURS AS NEEDED)
     Route: 048
     Dates: start: 20200918
  22. MORPHINE SULPHATE [Concomitant]
     Active Substance: MORPHINE SULFATE
     Indication: ABDOMINAL PAIN UPPER
     Dosage: 0.25 ML (VERY TWO HOURS AS NEEDED)
     Route: 048
     Dates: start: 20200918
  23. QUETIAPINE FUMARATE. [Concomitant]
     Active Substance: QUETIAPINE FUMARATE
     Indication: ANXIETY
     Dosage: 25 MG (EVERY 24 HOURS NEEDED)
     Route: 048
     Dates: start: 20200708, end: 20200708
  24. ASPIRIN [ACETYLSALICYLIC ACID] [Concomitant]
     Active Substance: ASPIRIN
     Indication: CEREBRAL INFARCTION
     Dosage: 325 MG, QD
     Route: 048
     Dates: start: 20200626
  25. ASPIRIN [ACETYLSALICYLIC ACID] [Concomitant]
     Active Substance: ASPIRIN
     Dosage: 325 MG, QD
     Route: 048
     Dates: start: 20200709
  26. AMLODIPINE BESYLATE. [Concomitant]
     Active Substance: AMLODIPINE BESYLATE
     Indication: HYPERTENSION
     Dosage: 10 MG, QD (AS NEEDED)
     Route: 048
     Dates: start: 20200708
  27. DOXYCYCLINE HYCLATE. [Concomitant]
     Active Substance: DOXYCYCLINE HYCLATE
     Indication: INFECTION
     Dosage: 100 MG, BID
     Route: 048
     Dates: start: 20200625
  28. OMEPRAZOLE. [Concomitant]
     Active Substance: OMEPRAZOLE
     Indication: DYSPEPSIA
     Dosage: 20 MG, BID
     Route: 048
     Dates: start: 20171015
  29. PRAVASTATIN SODIUM. [Concomitant]
     Active Substance: PRAVASTATIN SODIUM
     Indication: CORONARY ARTERY DISEASE
     Dosage: 20 MG, QD (EVERY EVENING)
     Route: 048
     Dates: start: 20171015
  30. ACETAMINOPHEN. [Concomitant]
     Active Substance: ACETAMINOPHEN
     Indication: BODY TEMPERATURE INCREASED
     Dosage: 2 DF, QID
     Route: 048
     Dates: start: 20200625
  31. LISINOPRIL. [Concomitant]
     Active Substance: LISINOPRIL
     Dosage: 20 MG, QD
     Route: 048
     Dates: start: 20200709
  32. NORCO [Concomitant]
     Active Substance: ACETAMINOPHEN\HYDROCODONE BITARTRATE
     Indication: PELVIC FRACTURE
     Dosage: 1 DF (EVERY FOUR HOURS)
     Route: 048
     Dates: start: 20200819
  33. NORCO [Concomitant]
     Active Substance: ACETAMINOPHEN\HYDROCODONE BITARTRATE
     Indication: FRACTURED SACRUM
     Dosage: 1 DF (EVERY 8 HOURS NEEDED)
     Route: 048
     Dates: start: 20200813
  34. AMLODIPINE BESYLATE. [Concomitant]
     Active Substance: AMLODIPINE BESYLATE
     Dosage: 5 MG, QD (AS NEEDED)
     Route: 048
     Dates: start: 20171015
  35. ACETAMINOPHEN. [Concomitant]
     Active Substance: ACETAMINOPHEN
     Indication: PAIN
     Dosage: 2 DF, QID
     Route: 048
     Dates: start: 20171014
  36. BISACODYL. [Concomitant]
     Active Substance: BISACODYL
     Indication: CONSTIPATION
     Dosage: 1 DF (AS NEEDED)
     Route: 054
     Dates: start: 20171018
  37. CAPSICUM SPP. OLEORESIN [Concomitant]
     Active Substance: CAPSICUM OLEORESIN
     Indication: WOUND TREATMENT
     Dosage: UNK (APPLY AFFECTED AREA TOPICALLY EVERY DAY AND EVENING SHIFT AS NEEDED)
     Route: 061
     Dates: start: 20200625
  38. METOPROLOL TARTRATE. [Concomitant]
     Active Substance: METOPROLOL TARTRATE
     Dosage: 50 MG, BID
     Route: 048
     Dates: start: 20200709
  39. WELCHOL [Concomitant]
     Active Substance: COLESEVELAM HYDROCHLORIDE
     Dosage: 1 DF, QD
     Route: 048
     Dates: start: 20200709
  40. KEPPRA [Concomitant]
     Active Substance: LEVETIRACETAM
     Indication: SEIZURE
     Dosage: 50 MG, BID
     Route: 048
     Dates: start: 20171014
  41. MILK OF MAGNESIA [Concomitant]
     Active Substance: MAGNESIUM HYDROXIDE
     Indication: BOWEL MOVEMENT IRREGULARITY
     Dosage: 30 ML, QD (AS NEEDED)
     Route: 048
     Dates: start: 20171018
  42. BISACODYL. [Concomitant]
     Active Substance: BISACODYL
     Dosage: 1 DF (EVERY 24 HOURS AS NEEDED)
     Route: 054
     Dates: start: 20200918
  43. CEPHRADINE [Concomitant]
     Active Substance: CEPHRADINE
     Indication: INFECTION
     Dosage: 250 MG, QID
     Route: 048
     Dates: start: 20200708
  44. METOPROLOL TARTRATE. [Concomitant]
     Active Substance: METOPROLOL TARTRATE
     Dosage: 50 MG, BID
     Route: 048
     Dates: start: 20171014
  45. METOPROLOL TARTRATE. [Concomitant]
     Active Substance: METOPROLOL TARTRATE
     Dosage: 100 MG, BID
     Route: 048
     Dates: start: 20200625

REACTIONS (2)
  - Death [Fatal]
  - Product use in unapproved indication [Unknown]

NARRATIVE: CASE EVENT DATE: 20200718
